FAERS Safety Report 12525516 (Version 1)
Quarter: 2016Q3

REPORT INFORMATION
  Report Type: Report from Study
  Country: US (occurrence: US)
  Receive Date: 20160704
  Receipt Date: 20160704
  Transmission Date: 20161109
  Serious: No
  Sender: FDA-Public Use
  Company Number: PHEH2016US016441

PATIENT
  Age: 47 Year
  Sex: Female
  Weight: 95.25 kg

DRUGS (1)
  1. GLEEVEC [Suspect]
     Active Substance: IMATINIB MESYLATE
     Indication: SLEEP DISORDER
     Dosage: 400 MG, QD
     Route: 048
     Dates: start: 20081201

REACTIONS (2)
  - Product use issue [Unknown]
  - Fatigue [Unknown]

NARRATIVE: CASE EVENT DATE: 20081201
